FAERS Safety Report 16173548 (Version 1)
Quarter: 2019Q2

REPORT INFORMATION
  Report Type: Spontaneous
  Country: US (occurrence: US)
  Receive Date: 20190408
  Receipt Date: 20190408
  Transmission Date: 20190711
  Serious: Yes (Other)
  Sender: FDA-Public Use
  Company Number: None

PATIENT
  Age: 61 Year
  Sex: Female
  Weight: 91.35 kg

DRUGS (6)
  1. TAGAMET [Concomitant]
     Active Substance: CIMETIDINE
  2. ARMOUR THYROID [Concomitant]
     Active Substance: THYROID, PORCINE
  3. ZYRTEC [Concomitant]
     Active Substance: CETIRIZINE HYDROCHLORIDE
  4. MONTELUKAST [Concomitant]
     Active Substance: MONTELUKAST SODIUM
  5. METFORMIN [Concomitant]
     Active Substance: METFORMIN HYDROCHLORIDE
  6. VALACYCLOVIR HCL 1 GM TABS [Suspect]
     Active Substance: VALACYCLOVIR HYDROCHLORIDE
     Indication: HERPES ZOSTER
     Dosage: ?          QUANTITY:42 TABLET(S);?
     Route: 048
     Dates: start: 20190403

REACTIONS (4)
  - Malaise [None]
  - Dizziness [None]
  - Confusional state [None]
  - Back pain [None]

NARRATIVE: CASE EVENT DATE: 20190408
